FAERS Safety Report 8866149 (Version 1)
Quarter: 2012Q4

REPORT INFORMATION
  Report Type: Report from Study
  Country: FR (occurrence: FR)
  Receive Date: 20121025
  Receipt Date: 20121025
  Transmission Date: 20130627
  Serious: Yes (Death, Other)
  Sender: FDA-Public Use
  Company Number: FR-PFIZER INC-2012246919

PATIENT
  Age: 56 Year
  Sex: Male

DRUGS (7)
  1. BLINDED NO SUBJECT DRUG [Suspect]
     Indication: HEPATIC NEOPLASM MALIGNANT RECURRENT
     Dosage: UNK
  2. BLINDED PLACEBO [Suspect]
     Indication: HEPATIC NEOPLASM MALIGNANT RECURRENT
     Dosage: UNK
  3. SUNITINIB MALATE [Suspect]
     Indication: HEPATIC NEOPLASM MALIGNANT RECURRENT
     Dosage: UNK
  4. DOXORUBICIN HCL [Suspect]
     Indication: HEPATIC NEOPLASM MALIGNANT RECURRENT
     Dosage: UNK
     Dates: end: 20121003
  5. SKENAN [Concomitant]
     Indication: PAIN
     Dosage: 60 mg, 1x/day
  6. SKENAN [Concomitant]
     Indication: DRUG DEPENDENCE
  7. CELIPROLOL [Concomitant]
     Indication: HYPERTENSION
     Dosage: 200 mg, 1x/day

REACTIONS (4)
  - Renal failure [Fatal]
  - Hepatic failure [Fatal]
  - Endocarditis [Fatal]
  - Hyponatraemia [Fatal]
